FAERS Safety Report 6780512-6 (Version None)
Quarter: 2010Q2

REPORT INFORMATION
  Report Type: 
  Country: None (occurrence: None)
  Receive Date: 20100621
  Receipt Date: 20100609
  Transmission Date: 20101027
  Serious: No
  Sender: FDA-Public Use
  Company Number: US-BIOGENIDEC-2010BI019603

PATIENT
  Age: 31 Year
  Sex: Female

DRUGS (2)
  1. TYSABRI [Suspect]
     Indication: MULTIPLE SCLEROSIS
     Route: 042
     Dates: start: 20080725
  2. AVONEX [Concomitant]
     Indication: MULTIPLE SCLEROSIS
     Route: 030
     Dates: start: 20040507

REACTIONS (6)
  - BALANCE DISORDER [None]
  - FATIGUE [None]
  - GLAUCOMA [None]
  - HYPOTENSION [None]
  - INFUSION SITE EXTRAVASATION [None]
  - POOR VENOUS ACCESS [None]
